FAERS Safety Report 13789792 (Version 1)
Quarter: 2017Q3

REPORT INFORMATION
  Report Type: Report from Study
  Country: BR (occurrence: BR)
  Receive Date: 20170725
  Receipt Date: 20170725
  Transmission Date: 20171127
  Serious: Yes (Other)
  Sender: FDA-Public Use
  Company Number: ALCN2017BR004599

PATIENT
  Sex: Female
  Weight: 80 kg

DRUGS (2)
  1. AZORGA [Suspect]
     Active Substance: BRINZOLAMIDE\TIMOLOL MALEATE
     Indication: GLAUCOMA
     Route: 065
  2. DIOVAN HCT [Suspect]
     Active Substance: HYDROCHLOROTHIAZIDE\VALSARTAN
     Indication: HYPERTENSION
     Dosage: 1 DF ((HYDROCHLOROTHIAZIDE 12.5 MG AND VALSARTAN 160MG), QD
     Route: 048

REACTIONS (1)
  - Cataract [Recovering/Resolving]
